FAERS Safety Report 8219518-9 (Version None)
Quarter: 2012Q1

REPORT INFORMATION
  Report Type: 
  Country: None (occurrence: None)
  Receive Date: 20120319
  Receipt Date: 20120308
  Transmission Date: 20120608
  Serious: Yes (Other)
  Sender: FDA-Public Use
  Company Number: DE-BRISTOL-MYERS SQUIBB COMPANY-16442931

PATIENT
  Age: 5 Decade
  Sex: Male

DRUGS (2)
  1. CLOZAPINE [Suspect]
  2. ABILIFY [Suspect]
     Indication: SCHIZOAFFECTIVE DISORDER BIPOLAR TYPE
     Dosage: STARTED AS 15MG THEN DOSE INCREASED TO 20MG
     Dates: start: 20120201, end: 20120101

REACTIONS (1)
  - PSYCHOTIC DISORDER [None]
